FAERS Safety Report 23166816 (Version 1)
Quarter: 2023Q4

REPORT INFORMATION
  Report Type: Spontaneous
  Country: US (occurrence: None)
  Receive Date: 20231109
  Receipt Date: 20231109
  Transmission Date: 20240109
  Serious: Yes (Death)
  Sender: FDA-Public Use
  Company Number: None

PATIENT
  Age: 51 Year
  Sex: Female

DRUGS (1)
  1. CYCLOPHOSPHAMIDE [Suspect]
     Active Substance: CYCLOPHOSPHAMIDE
     Indication: Autoimmune disorder
     Dosage: OTHER FREQUENCY : EVERY 3 MONTHS;?OTHER ROUTE : INFUSE MEDICATION;?
     Route: 050
     Dates: start: 20200310, end: 20230710

REACTIONS (1)
  - Death [None]

NARRATIVE: CASE EVENT DATE: 20231108
